FAERS Safety Report 23349207 (Version 1)
Quarter: 2023Q4

REPORT INFORMATION
  Report Type: Report from Study
  Country: US (occurrence: US)
  Receive Date: 20231229
  Receipt Date: 20231229
  Transmission Date: 20240109
  Serious: Yes (Hospitalization, Other)
  Sender: FDA-Public Use
  Company Number: US-JNJFOC-20231266870

PATIENT
  Sex: Female

DRUGS (1)
  1. SPRAVATO [Suspect]
     Active Substance: ESKETAMINE
     Indication: Depression

REACTIONS (6)
  - Impaired gastric emptying [Unknown]
  - Sepsis [Unknown]
  - Oral surgery [Unknown]
  - Hepatic enzyme increased [Unknown]
  - Fall [Unknown]
  - Lower limb fracture [Unknown]
